FAERS Safety Report 8844391 (Version 1)
Quarter: 2012Q4

REPORT INFORMATION
  Report Type: Spontaneous
  Country: US (occurrence: None)
  Receive Date: 20121016
  Receipt Date: 20121016
  Transmission Date: 20130627
  Serious: Yes (Hospitalization)
  Sender: FDA-Public Use
  Company Number: None

PATIENT
  Sex: Male
  Weight: 99.6 kg

DRUGS (13)
  1. COUMADIN [Suspect]
     Indication: CHRONIC ATRIAL FIBRILLATION
     Route: 048
  2. ASA [Suspect]
     Indication: MYOCARDIAL INFARCTION
     Route: 048
  3. FERROUS SULFATE [Concomitant]
  4. SOTALOL [Concomitant]
  5. COREG [Concomitant]
  6. NORVASC [Concomitant]
  7. ACCUPRIL [Concomitant]
  8. LEXAPRO [Concomitant]
  9. MVI [Concomitant]
  10. CARDURA [Concomitant]
  11. ISOSORBIDE MONOTRATE [Concomitant]
  12. NIASPAN [Concomitant]
  13. LIPITOR [Concomitant]

REACTIONS (2)
  - Haematuria [None]
  - Disease recurrence [None]
